FAERS Safety Report 7108768-0 (Version None)
Quarter: 2010Q4

REPORT INFORMATION
  Report Type: 
  Country: None (occurrence: None)
  Receive Date: 20101112
  Receipt Date: 20101103
  Transmission Date: 20110411
  Serious: Yes (Hospitalization)
  Sender: FDA-Public Use
  Company Number: 2010EU005228

PATIENT
  Age: 11 Year
  Sex: Male
  Weight: 42 kg

DRUGS (3)
  1. PROTOPIC [Suspect]
     Dates: start: 20050809
  2. PROTOPIC [Suspect]
     Dates: start: 20090614
  3. . [Concomitant]

REACTIONS (3)
  - ABDOMINAL PAIN [None]
  - DERMATITIS ATOPIC [None]
  - ERYTHEMA [None]
